FAERS Safety Report 19519668 (Version 2)
Quarter: 2021Q3

REPORT INFORMATION
  Report Type: Spontaneous
  Country: US (occurrence: US)
  Receive Date: 20210712
  Receipt Date: 20210716
  Transmission Date: 20211014
  Serious: No
  Sender: FDA-Public Use
  Company Number: US-JNJFOC-20210708751

PATIENT

DRUGS (1)
  1. ROGAINE [Suspect]
     Active Substance: MINOXIDIL
     Indication: PRODUCT USED FOR UNKNOWN INDICATION
     Dosage: PRODUCT WAS USED FOR 20 YEARS AND DISCONTINUED ABOUT 3 YEARS AGO
     Route: 065
     Dates: end: 2018

REACTIONS (1)
  - Therapeutic product effect incomplete [Unknown]
